FAERS Safety Report 5798192-5 (Version None)
Quarter: 2008Q3

REPORT INFORMATION
  Report Type: 
  Country: None (occurrence: None)
  Receive Date: 20080702
  Receipt Date: 20080627
  Transmission Date: 20090109
  Serious: Yes (Other)
  Sender: FDA-Public Use
  Company Number: A0735858A

PATIENT
  Age: 37 Year
  Sex: Female

DRUGS (3)
  1. STELAZINE [Suspect]
     Indication: DEPRESSION
     Dosage: 5MG PER DAY
     Dates: start: 20080613
  2. DIAZEPAM [Concomitant]
     Dates: start: 20080617
  3. HYDROCHLOROTHIAZIDE [Concomitant]
     Dosage: 25MG THREE TIMES PER DAY
     Dates: start: 20080401

REACTIONS (3)
  - AGITATION [None]
  - HALLUCINATION [None]
  - INSOMNIA [None]
